FAERS Safety Report 6101964-0 (Version None)
Quarter: 2009Q1

REPORT INFORMATION
  Report Type: 
  Country: None (occurrence: None)
  Receive Date: 20090304
  Receipt Date: 20090220
  Transmission Date: 20090719
  Serious: Yes (Other)
  Sender: FDA-Public Use
  Company Number: US-PFIZER INC-2009174489

PATIENT

DRUGS (1)
  1. ZYVOX [Suspect]

REACTIONS (2)
  - DRUG RESISTANCE [None]
  - STAPHYLOCOCCAL INFECTION [None]
